FAERS Safety Report 16959468 (Version 1)
Quarter: 2019Q4

REPORT INFORMATION
  Report Type: Spontaneous
  Country: AU (occurrence: AU)
  Receive Date: 20191025
  Receipt Date: 20191025
  Transmission Date: 20200122
  Serious: Yes (Other)
  Sender: FDA-Public Use
  Company Number: AU-B.I. PHARMACEUTICALS,INC./RIDGEFIELD-2019-BI-108531

PATIENT
  Sex: Male

DRUGS (1)
  1. JARDIAMET [Suspect]
     Active Substance: EMPAGLIFLOZIN\METFORMIN HYDROCHLORIDE
     Indication: PRODUCT USED FOR UNKNOWN INDICATION
     Route: 065

REACTIONS (7)
  - Colonoscopy [Unknown]
  - Blood pH decreased [Recovered/Resolved]
  - Wrong product administered [Unknown]
  - Diabetic ketoacidosis [Recovered/Resolved]
  - Vomiting [Recovered/Resolved]
  - Blood ketone body increased [Recovered/Resolved]
  - Aspiration [Recovered/Resolved]
